FAERS Safety Report 6731800-0 (Version None)
Quarter: 2010Q2

REPORT INFORMATION
  Report Type: 
  Country: None (occurrence: None)
  Receive Date: 20100519
  Receipt Date: 20100510
  Transmission Date: 20101027
  Serious: Yes (Other)
  Sender: FDA-Public Use
  Company Number: US-PFIZER INC-2010059491

PATIENT
  Sex: Male

DRUGS (5)
  1. CHANTIX [Suspect]
     Dosage: 0.5 MG, 1X/DAY
     Route: 048
     Dates: start: 20100507
  2. LANTUS [Concomitant]
     Indication: BLOOD GLUCOSE INCREASED
     Dosage: 20 IU, 2X/DAY
  3. HUMULIN R [Concomitant]
     Indication: BLOOD GLUCOSE INCREASED
     Dosage: UNK
  4. ACETYLSALICYLIC ACID [Concomitant]
     Indication: VASCULAR GRAFT
     Dosage: 81 MG, 1X/DAY
     Route: 048
  5. PLAVIX [Concomitant]
     Indication: VASCULAR GRAFT
     Dosage: 75 MG, 1X/DAY
     Route: 048

REACTIONS (1)
  - BLOOD GLUCOSE INCREASED [None]
